FAERS Safety Report 9264404 (Version 1)
Quarter: 2013Q2

REPORT INFORMATION
  Report Type: Spontaneous
  Country: DE (occurrence: DE)
  Receive Date: 20130430
  Receipt Date: 20130430
  Transmission Date: 20140414
  Serious: Yes (Disabling)
  Sender: FDA-Public Use
  Company Number: DE-B.I. PHARMACEUTICALS,INC./RIDGEFIELD-2013-DE-01237DE

PATIENT
  Sex: Female
  Weight: 59 kg

DRUGS (2)
  1. PRADAXA [Suspect]
     Indication: ATRIAL FIBRILLATION
     Dosage: 150 NR
     Dates: start: 20120320
  2. BISOPROLOL [Concomitant]
     Dosage: 1 ANZ

REACTIONS (1)
  - Ischaemic stroke [Recovered/Resolved with Sequelae]
